FAERS Safety Report 19804230 (Version 1)
Quarter: 2021Q3

REPORT INFORMATION
  Report Type: Spontaneous
  Country: US (occurrence: US)
  Receive Date: 20210908
  Receipt Date: 20210908
  Transmission Date: 20211014
  Serious: No
  Sender: FDA-Public Use
  Company Number: US-FARMAPROD-202104-0544

PATIENT
  Sex: Female

DRUGS (8)
  1. LATANOPROST. [Concomitant]
     Active Substance: LATANOPROST
  2. PAXIL [Concomitant]
     Active Substance: PAROXETINE HYDROCHLORIDE
  3. AZOPT [Concomitant]
     Active Substance: BRINZOLAMIDE
  4. BESIVANCE [Concomitant]
     Active Substance: BESIFLOXACIN
     Dosage: DROPS SUPENSION
  5. OXERVATE [Suspect]
     Active Substance: CENEGERMIN-BKBJ
     Indication: NEUROTROPHIC KERATOPATHY
     Route: 047
     Dates: start: 20210208
  6. IMURAN [Concomitant]
     Active Substance: AZATHIOPRINE
  7. PEPCID [Concomitant]
     Active Substance: FAMOTIDINE
  8. COMBIGAN [Concomitant]
     Active Substance: BRIMONIDINE TARTRATE\TIMOLOL MALEATE
     Dosage: 0.2%?0.5%

REACTIONS (5)
  - Foreign body sensation in eyes [Unknown]
  - Ocular discomfort [Unknown]
  - Off label use [Unknown]
  - Eye pain [Unknown]
  - Product administration error [Unknown]
